FAERS Safety Report 9935230 (Version 1)
Quarter: 2014Q1

REPORT INFORMATION
  Report Type: Report from Study
  Country: JP (occurrence: JP)
  Receive Date: 20140228
  Receipt Date: 20140228
  Transmission Date: 20141002
  Serious: Yes (Death)
  Sender: FDA-Public Use
  Company Number: JP-UCBSA-113529

PATIENT
  Age: 75 Year
  Sex: Male

DRUGS (2)
  1. CIMZIA [Suspect]
     Dosage: 200 MG SYRINGE
     Route: 058
     Dates: start: 20130730
  2. RIZAST [Concomitant]
     Route: 048

REACTIONS (2)
  - Death [Fatal]
  - Pneumonia [Unknown]
